FAERS Safety Report 6615202-3 (Version None)
Quarter: 2010Q1

REPORT INFORMATION
  Report Type: 
  Country: None (occurrence: None)
  Receive Date: 20100305
  Receipt Date: 20100301
  Transmission Date: 20100710
  Serious: Yes (Death)
  Sender: FDA-Public Use
  Company Number: PHHY2010CA03959

PATIENT
  Sex: Female

DRUGS (10)
  1. ACLASTA [Suspect]
     Indication: OSTEOPOROSIS
     Dosage: UNK
     Dates: start: 20090311
  2. LIPITOR [Concomitant]
  3. PLAVIX [Concomitant]
     Dosage: 75
  4. SYNTHROID [Concomitant]
     Dosage: 0.5
  5. NORVASC [Concomitant]
     Dosage: 5
  6. PANTOPRAZOLE [Concomitant]
     Dosage: 40
  7. NITROGLYCERIN [Concomitant]
  8. CALCIUM [Concomitant]
  9. MOTILIUM [Concomitant]
     Dosage: QID
  10. ONEALFA [Concomitant]

REACTIONS (1)
  - CEREBRAL HAEMORRHAGE [None]
